FAERS Safety Report 10760515 (Version 2)
Quarter: 2015Q1

REPORT INFORMATION
  Report Type: Spontaneous
  Country: US (occurrence: US)
  Receive Date: 20150204
  Receipt Date: 20150205
  Transmission Date: 20150721
  Serious: No
  Sender: FDA-Public Use
  Company Number: 2014SP005898

PATIENT
  Age: 84 Year
  Sex: Male

DRUGS (2)
  1. VANCOMYCIN [Suspect]
     Active Substance: VANCOMYCIN
     Indication: PRODUCT USED FOR UNKNOWN INDICATION
     Dates: start: 20141117, end: 20141118
  2. VANCOMYCIN [Suspect]
     Active Substance: VANCOMYCIN
     Indication: PRODUCT USED FOR UNKNOWN INDICATION
     Dates: start: 20141121

REACTIONS (2)
  - Dyspnoea [Not Recovered/Not Resolved]
  - Abdominal rigidity [Not Recovered/Not Resolved]

NARRATIVE: CASE EVENT DATE: 20141117
